FAERS Safety Report 12358446 (Version 1)
Quarter: 2016Q2

REPORT INFORMATION
  Report Type: Spontaneous
  Country: US (occurrence: US)
  Receive Date: 20160512
  Receipt Date: 20160512
  Transmission Date: 20160815
  Serious: No
  Sender: FDA-Public Use
  Company Number: US-PFIZER INC-2016244474

PATIENT
  Age: 12 Year
  Sex: Female

DRUGS (1)
  1. GENOTROPIN [Suspect]
     Active Substance: SOMATROPIN
     Indication: PRADER-WILLI SYNDROME
     Dosage: 1 MG, DAILY
     Route: 058
     Dates: start: 200711

REACTIONS (5)
  - Condition aggravated [Recovered/Resolved]
  - Accidental overdose [Recovered/Resolved]
  - Mania [Recovered/Resolved]
  - Drug dispensing error [Recovered/Resolved]
  - Anxiety [Recovered/Resolved]
